FAERS Safety Report 18419448 (Version 1)
Quarter: 2020Q4

REPORT INFORMATION
  Report Type: Spontaneous
  Country: US (occurrence: US)
  Receive Date: 20201023
  Receipt Date: 20201023
  Transmission Date: 20210114
  Serious: No
  Sender: FDA-Public Use
  Company Number: None

PATIENT
  Sex: Female

DRUGS (1)
  1. COPAXONE [Suspect]
     Active Substance: GLATIRAMER ACETATE
     Indication: MULTIPLE SCLEROSIS
     Route: 058

REACTIONS (10)
  - Escherichia infection [None]
  - Arthritis [None]
  - Abdominal pain upper [None]
  - Hypertension [None]
  - Pruritus [None]
  - Pharyngeal swelling [None]
  - Anaemia [None]
  - Thrombosis [None]
  - Constipation [None]
  - Arthralgia [None]
